FAERS Safety Report 23272278 (Version 1)
Quarter: 2023Q4

REPORT INFORMATION
  Report Type: Spontaneous
  Country: DE (occurrence: DE)
  Receive Date: 20231207
  Receipt Date: 20231207
  Transmission Date: 20240110
  Serious: Yes (Other)
  Sender: FDA-Public Use
  Company Number: DE-002147023-NVSC2023DE256147

PATIENT

DRUGS (6)
  1. RUXOLITINIB [Suspect]
     Active Substance: RUXOLITINIB
     Indication: Inflammatory bowel disease
     Dosage: 30 MG/M2, BID (TOTAL 38 MONTHS OF TREATMENT GIVEN)
     Route: 065
  2. RUXOLITINIB [Suspect]
     Active Substance: RUXOLITINIB
     Indication: Aphthous ulcer
  3. RUXOLITINIB [Suspect]
     Active Substance: RUXOLITINIB
     Indication: Interstitial lung disease
  4. RUXOLITINIB [Suspect]
     Active Substance: RUXOLITINIB
     Indication: Bronchiectasis
  5. RUXOLITINIB [Suspect]
     Active Substance: RUXOLITINIB
     Indication: Diabetes mellitus
  6. RUXOLITINIB [Suspect]
     Active Substance: RUXOLITINIB
     Indication: Mucocutaneous candidiasis

REACTIONS (3)
  - Off label use [Unknown]
  - Product use in unapproved indication [Unknown]
  - Epstein-Barr virus infection reactivation [Recovered/Resolved]
